FAERS Safety Report 13669456 (Version 2)
Quarter: 2018Q1

REPORT INFORMATION
  Report Type: Spontaneous
  Country: KR (occurrence: KR)
  Receive Date: 20170620
  Receipt Date: 20180131
  Transmission Date: 20180508
  Serious: Yes (Life-Threatening, Hospitalization, Other)
  Sender: FDA-Public Use
  Company Number: KR-MYLANLABS-2017M1033794

PATIENT
  Age: 28 Year
  Sex: Male

DRUGS (8)
  1. CLOZAPINE. [Suspect]
     Active Substance: CLOZAPINE
     Indication: DYSTONIA
     Dosage: UNK
  2. ARIPIPRAZOLE. [Suspect]
     Active Substance: ARIPIPRAZOLE
     Indication: SCHIZOAFFECTIVE DISORDER
     Dosage: 10 MG, QD
  3. ARIPIPRAZOLE. [Suspect]
     Active Substance: ARIPIPRAZOLE
     Dosage: 20 MG, QD
  4. ARIPIPRAZOLE. [Suspect]
     Active Substance: ARIPIPRAZOLE
     Dosage: UNK
  5. BENZTROPINE [Concomitant]
     Active Substance: BENZTROPINE
     Dosage: 4 MG, UNK
     Route: 065
  6. CLOZAPINE. [Suspect]
     Active Substance: CLOZAPINE
     Indication: SCHIZOAFFECTIVE DISORDER
     Dosage: 300 MG, QD
  7. CLOZAPINE. [Suspect]
     Active Substance: CLOZAPINE
     Dosage: 200 MG, QD
  8. BENZTROPINE [Concomitant]
     Active Substance: BENZTROPINE
     Indication: ANTICHOLINERGIC SYNDROME
     Dosage: 3 MG, QD

REACTIONS (9)
  - Withdrawal syndrome [Unknown]
  - Torticollis [Recovering/Resolving]
  - Product use in unapproved indication [Unknown]
  - Movement disorder [Not Recovered/Not Resolved]
  - Dystonia [Recovering/Resolving]
  - Psychotic disorder [Recovering/Resolving]
  - Delirium [Recovered/Resolved]
  - Pneumonia aspiration [Recovering/Resolving]
  - Salivary hypersecretion [Unknown]
